FAERS Safety Report 4354596-9 (Version None)
Quarter: 2004Q2

REPORT INFORMATION
  Report Type: 
  Country: None (occurrence: None)
  Receive Date: 20040503
  Receipt Date: 20040422
  Transmission Date: 20050107
  Serious: Yes (Death, Hospitalization)
  Sender: FDA-Public Use
  Company Number: US-JNJFOC-20040405646

PATIENT
  Age: 68 Year
  Sex: Male

DRUGS (2)
  1. LEVAQUIN [Suspect]
     Indication: BRONCHITIS ACUTE
     Dates: start: 20040114, end: 20040202
  2. STEROIDS (CORTICOSTEROID NOS) [Concomitant]

REACTIONS (4)
  - ASPIRATION [None]
  - PNEUMONIA [None]
  - PNEUMONITIS [None]
  - STAPHYLOCOCCAL INFECTION [None]
